FAERS Safety Report 16662484 (Version 1)
Quarter: 2019Q3

REPORT INFORMATION
  Report Type: Report from Study
  Country: US (occurrence: US)
  Receive Date: 20190802
  Receipt Date: 20190802
  Transmission Date: 20191004
  Serious: No
  Sender: FDA-Public Use
  Company Number: US-EXELIXIS-CABO-19019010

PATIENT
  Age: 69 Year
  Sex: Male

DRUGS (1)
  1. CABOMETYX [Suspect]
     Active Substance: CABOZANTINIB S-MALATE
     Indication: HEPATIC CANCER
     Dosage: 40 MG, QD (IN MORNING WITHOUT FOOD)
     Dates: start: 20190213

REACTIONS (10)
  - Paranasal sinus hypersecretion [Recovered/Resolved]
  - Blister [Unknown]
  - Glossodynia [Unknown]
  - Diarrhoea [Unknown]
  - Dizziness [Not Recovered/Not Resolved]
  - Constipation [Recovered/Resolved]
  - Erythema [Unknown]
  - Nausea [Not Recovered/Not Resolved]
  - Sneezing [Recovered/Resolved]
  - Fatigue [Unknown]

NARRATIVE: CASE EVENT DATE: 201902
